FAERS Safety Report 15014740 (Version 1)
Quarter: 2018Q2

REPORT INFORMATION
  Report Type: Report from Study
  Country: US (occurrence: US)
  Receive Date: 20180615
  Receipt Date: 20180615
  Transmission Date: 20180711
  Serious: No
  Sender: FDA-Public Use
  Company Number: US-ROCHE-2134867

PATIENT
  Age: 56 Year
  Sex: Female
  Weight: 77.18 kg

DRUGS (9)
  1. XANAX [Concomitant]
     Active Substance: ALPRAZOLAM
     Dosage: FOR SLEEP?AT NIGHT TO SLEEP
     Route: 048
  2. METHENAMINE HIPPURATE. [Concomitant]
     Active Substance: METHENAMINE HIPPURATE
     Indication: MICTURITION URGENCY
     Dosage: ONLY TOOK 2 DOSES, ONGOING;NO?URINARY URGENCY
     Route: 065
  3. LEXAPRO [Concomitant]
     Active Substance: ESCITALOPRAM OXALATE
     Dosage: ONGOING;YES
     Route: 048
  4. BOTOX [Concomitant]
     Active Substance: ONABOTULINUMTOXINA
     Indication: NEUROGENIC BLADDER
     Dosage: INJECT INTO BLADDER WITH CYSTOSCOPY, ONGOING:NO
     Route: 065
     Dates: start: 2015, end: 201805
  5. D-MANNOSE [Concomitant]
     Indication: MICTURITION URGENCY
     Dosage: ONGOING;YES?FOR URINARY URGENCY
     Route: 048
     Dates: start: 201805
  6. OCREVUS [Suspect]
     Active Substance: OCRELIZUMAB
     Indication: RELAPSING MULTIPLE SCLEROSIS
     Route: 042
     Dates: start: 201706
  7. OCREVUS [Suspect]
     Active Substance: OCRELIZUMAB
     Indication: RELAPSING-REMITTING MULTIPLE SCLEROSIS
     Dosage: ONGOING:YES
     Route: 042
     Dates: start: 201706
  8. DIOVAN [Concomitant]
     Active Substance: VALSARTAN
     Indication: HYPERTENSION
     Route: 048
  9. METROPOLOL COMP [Concomitant]
     Indication: HYPERTENSION
     Route: 048

REACTIONS (7)
  - Asthenia [Not Recovered/Not Resolved]
  - Asthenia [Not Recovered/Not Resolved]
  - Urinary tract infection [Recovered/Resolved]
  - Pollakiuria [Recovering/Resolving]
  - Hypertension [Not Recovered/Not Resolved]
  - Muscle spasticity [Not Recovered/Not Resolved]
  - Ill-defined disorder [Not Recovered/Not Resolved]

NARRATIVE: CASE EVENT DATE: 201706
